FAERS Safety Report 5970093-9 (Version None)
Quarter: 2008Q4

REPORT INFORMATION
  Report Type: 
  Country: None (occurrence: None)
  Receive Date: 20081126
  Receipt Date: 20081009
  Transmission Date: 20090506
  Serious: No
  Sender: FDA-Public Use
  Company Number: US-ABBOTT-08P-163-0480886-00

PATIENT
  Sex: Female
  Weight: 79.45 kg

DRUGS (12)
  1. SIMCOR [Suspect]
     Indication: BLOOD CHOLESTEROL INCREASED
     Dosage: 500/20MG QHS
     Route: 048
     Dates: start: 20080701, end: 20080901
  2. SIMCOR [Suspect]
     Indication: BLOOD TRIGLYCERIDES INCREASED
  3. AMOXICILLIN [Concomitant]
     Indication: MITRAL VALVE PROLAPSE
     Route: 048
  4. SERETIDE [Concomitant]
     Indication: ASTHMA
     Route: 048
  5. IRBESARTAN [Concomitant]
     Indication: HYPERTENSION
     Route: 048
  6. OMEPRAZOLE SODIUM [Concomitant]
     Indication: GASTRIC DISORDER
     Route: 048
  7. M.V.I. [Concomitant]
     Indication: ROUTINE HEALTH MAINTENANCE
     Route: 048
  8. LEVOTHYROXINE SODIUM [Concomitant]
     Indication: HYPOTHYROIDISM
     Route: 048
  9. SERTRALINE [Concomitant]
     Indication: DEPRESSION
     Route: 048
  10. MONTELUKAST SODIUM [Concomitant]
     Indication: ASTHMA
     Route: 048
  11. CETIRIZINE HYDROCHLORIDE [Concomitant]
     Indication: HYPERSENSITIVITY
     Route: 048
  12. PROVELLA-14 [Concomitant]
     Indication: HORMONE REPLACEMENT THERAPY
     Route: 048

REACTIONS (5)
  - ARTHRALGIA [None]
  - FEELING HOT [None]
  - MYALGIA [None]
  - PARAESTHESIA [None]
  - PRURITUS [None]
